FAERS Safety Report 7472729-2 (Version None)
Quarter: 2011Q2

REPORT INFORMATION
  Report Type: 
  Country: None (occurrence: None)
  Receive Date: 20110511
  Receipt Date: 20110509
  Transmission Date: 20111010
  Serious: Yes (Death)
  Sender: FDA-Public Use
  Company Number: US-PFIZER INC-2011098940

PATIENT
  Sex: Female

DRUGS (2)
  1. XANAX [Suspect]
  2. OPANA ER [Interacting]
     Route: 055

REACTIONS (7)
  - DRUG INTERACTION [None]
  - TOXICITY TO VARIOUS AGENTS [None]
  - LOSS OF CONSCIOUSNESS [None]
  - WAXY FLEXIBILITY [None]
  - DRUG ABUSE [None]
  - DYSPNOEA [None]
  - HYPOXIA [None]
